FAERS Safety Report 5597280-6 (Version None)
Quarter: 2007Q4

REPORT INFORMATION
  Report Type: 
  Country: None (occurrence: None)
  Receive Date: 20071221
  Receipt Date: 20071022
  Transmission Date: 20080405
  Serious: No
  Sender: FDA-Public Use
  Company Number: SPV1-2007-04662

PATIENT
  Age: 9 Year
  Sex: Male
  Weight: 43.5 kg

DRUGS (2)
  1. VYVANSE [Suspect]
     Indication: ATTENTION DEFICIT/HYPERACTIVITY DISORDER
     Dosage: 50 MG, 1X/DAY:QD, ORAL
     Route: 048
     Dates: start: 20071006, end: 20071017
  2. VYVANSE [Suspect]
     Indication: IMPULSIVE BEHAVIOUR
     Dosage: 50 MG, 1X/DAY:QD, ORAL
     Route: 048
     Dates: start: 20071006, end: 20071017

REACTIONS (1)
  - DIARRHOEA [None]
